FAERS Safety Report 25425417 (Version 1)
Quarter: 2025Q2

REPORT INFORMATION
  Report Type: Spontaneous
  Country: US (occurrence: US)
  Receive Date: 20250611
  Receipt Date: 20250611
  Transmission Date: 20250717
  Serious: Yes (Life-Threatening, Hospitalization)
  Sender: BIOMARIN
  Company Number: US-BIOMARINAP-US-2025-166340

PATIENT

DRUGS (2)
  1. PALYNZIQ [Suspect]
     Active Substance: PEGVALIASE-PQPZ
     Indication: Phenylketonuria
     Dosage: 10, UNK, QW
     Route: 058
  2. PALYNZIQ [Suspect]
     Active Substance: PEGVALIASE-PQPZ
     Dosage: 2.5 MILLIGRAM, QW
     Route: 058
     Dates: start: 20250422

REACTIONS (8)
  - Hypersensitivity [Recovering/Resolving]
  - Heart rate decreased [Recovered/Resolved]
  - Pyrexia [Recovered/Resolved]
  - Respiratory rate decreased [Recovered/Resolved]
  - Tachypnoea [Recovered/Resolved]
  - Asthenia [Recovering/Resolving]
  - Dizziness [Recovered/Resolved]
  - Rash [Recovered/Resolved]

NARRATIVE: CASE EVENT DATE: 20250602
